FAERS Safety Report 7417255-1 (Version None)
Quarter: 2011Q2

REPORT INFORMATION
  Report Type: 
  Country: None (occurrence: None)
  Receive Date: 20110415
  Receipt Date: 20101021
  Transmission Date: 20111010
  Serious: Yes (Other)
  Sender: FDA-Public Use
  Company Number: US-BAYER-201027888NA

PATIENT
  Age: 39 Year
  Sex: Female
  Weight: 79.365 kg

DRUGS (6)
  1. YASMIN [Suspect]
     Indication: CONTRACEPTION
     Dosage: RECEIVED 6 MONTHS OF SUPPLIES FROM PHYSICIAN, QD
     Route: 048
     Dates: start: 20071001, end: 20080901
  2. YAZ [Suspect]
     Indication: PRODUCT USED FOR UNKNOWN INDICATION
     Dosage: RECEIVED 6 MONTHS OF SUPPLIES FROM PHYSICIAN, QD
     Route: 048
     Dates: start: 20061101, end: 20070801
  3. OCELLA [Suspect]
     Indication: CONTRACEPTION
     Dosage: RECEIVED 6 MONTHS OF SUPPLIES FROM PHYSICIAN, QD
     Dates: start: 20080901, end: 20090601
  4. LEVOTHYROXINE [Concomitant]
     Dosage: 50 MCG/24HR, UNK
     Route: 048
  5. IBUPROFEN [Concomitant]
  6. NAPROXEN [Concomitant]

REACTIONS (2)
  - CHOLELITHIASIS [None]
  - CHOLECYSTITIS CHRONIC [None]
